FAERS Safety Report 25646401 (Version 1)
Quarter: 2025Q3

REPORT INFORMATION
  Report Type: Spontaneous
  Country: US (occurrence: US)
  Receive Date: 20250805
  Receipt Date: 20250805
  Transmission Date: 20251020
  Serious: No
  Sender: DR REDDYS
  Company Number: US-DRL-USA-USA/2025/07/011690

PATIENT

DRUGS (2)
  1. SORAFENIB [Suspect]
     Active Substance: SORAFENIB
     Indication: Acute myeloid leukaemia
  2. VENETOCLAX [Concomitant]
     Active Substance: VENETOCLAX
     Indication: Acute myeloid leukaemia

REACTIONS (2)
  - Drug resistance [Unknown]
  - Product use in unapproved indication [Unknown]
